FAERS Safety Report 9368564 (Version 2)
Quarter: 2013Q3

REPORT INFORMATION
  Report Type: Spontaneous
  Country: US (occurrence: US)
  Receive Date: 20130626
  Receipt Date: 20130819
  Transmission Date: 20140515
  Serious: Yes (Other)
  Sender: FDA-Public Use
  Company Number: US-AMGEN-USASP2013044623

PATIENT
  Age: 63 Year
  Sex: Male
  Weight: 77.55 kg

DRUGS (19)
  1. PROCRIT [Suspect]
     Indication: HAEMOGLOBIN DECREASED
     Dosage: 40000 UNIT/ML, QWK
     Route: 058
  2. INCIVEK [Suspect]
     Indication: HEPATITIS C
     Dosage: 1125 MG, BID
     Route: 048
     Dates: start: 20130228, end: 20130523
  3. INCIVEK [Suspect]
     Dosage: 375 MG, TID
     Route: 048
     Dates: start: 20130227, end: 20130527
  4. PEGASYS [Suspect]
     Indication: HEPATITIS C
     Dosage: 180 MUG, QWK
     Route: 058
     Dates: start: 20130227
  5. PEGASYS [Suspect]
     Dosage: 180 MUG, UNK
     Route: 058
     Dates: start: 20130228
  6. RIBAVIRIN [Suspect]
     Indication: HEPATITIS C
     Dosage: 200 MG, BID
     Route: 048
     Dates: start: 20130227
  7. RIBAVIRIN [Suspect]
     Dosage: 600 MG, BID
     Route: 048
     Dates: start: 20130228
  8. RIBAVIRIN [Suspect]
     Dosage: 1000 MG, QD
     Route: 048
     Dates: start: 20130508
  9. CELEXA                             /00582602/ [Concomitant]
     Dosage: 1 DF, QD
     Route: 048
  10. CELEXA                             /00582602/ [Concomitant]
     Dosage: 40 MG, QD
     Route: 048
  11. QUININE [Concomitant]
     Dosage: 650 MG, TID
     Route: 065
  12. QUININE [Concomitant]
     Dosage: 324 MG, TWO CAPSULE EVERY 8 HOURS
     Route: 048
  13. NORCO [Concomitant]
     Indication: PAIN
     Dosage: 1 DF, AS NECESSARY
     Route: 065
  14. NORCO [Concomitant]
     Dosage: 10- 325 MG, EVERY 4-6 HOURS AS NEEDED
  15. AMBIEN CR [Concomitant]
     Indication: INSOMNIA
     Dosage: 10 MG, QD
     Route: 048
  16. MENTHOL [Concomitant]
     Indication: RASH
     Dosage: UNK
  17. ZINC OXIDE [Concomitant]
     Indication: RASH PRURITIC
     Dosage: UNK
  18. AVEENO [Concomitant]
     Indication: RASH
     Dosage: UNK
  19. VISTARIL                           /00058402/ [Concomitant]
     Indication: PRURITUS
     Dosage: 25 MG, FOUR TIMES EVERY DAY EVERY 6 HOURS AS NEEDED
     Route: 048

REACTIONS (5)
  - Staphylococcal infection [Not Recovered/Not Resolved]
  - Pallor [Not Recovered/Not Resolved]
  - Asthenia [Not Recovered/Not Resolved]
  - Muscle spasms [Not Recovered/Not Resolved]
  - Anaemia [Not Recovered/Not Resolved]
